FAERS Safety Report 24214270 (Version 1)
Quarter: 2024Q3

REPORT INFORMATION
  Report Type: Spontaneous
  Country: FR (occurrence: FR)
  Receive Date: 20240815
  Receipt Date: 20240815
  Transmission Date: 20241017
  Serious: Yes (Hospitalization, Other)
  Sender: DR REDDYS
  Company Number: None

PATIENT
  Age: 69 Year
  Sex: Female
  Weight: 87 kg

DRUGS (22)
  1. CYCLOPHOSPHAMIDE [Suspect]
     Active Substance: CYCLOPHOSPHAMIDE
     Indication: Hodgkin^s disease
     Route: 042
     Dates: start: 20240524, end: 20240524
  2. CYCLOPHOSPHAMIDE [Suspect]
     Active Substance: CYCLOPHOSPHAMIDE
     Route: 042
     Dates: start: 20240503, end: 20240503
  3. MESNA [Suspect]
     Active Substance: MESNA
     Indication: Prophylaxis
     Route: 042
     Dates: start: 20240503, end: 20240503
  4. MESNA [Suspect]
     Active Substance: MESNA
     Route: 042
     Dates: start: 20240524, end: 20240524
  5. APREPITANT [Suspect]
     Active Substance: APREPITANT
     Indication: Prophylaxis of nausea and vomiting
     Route: 048
     Dates: start: 20240503, end: 20240503
  6. APREPITANT [Suspect]
     Active Substance: APREPITANT
     Route: 048
     Dates: start: 20240504, end: 20240505
  7. APREPITANT [Suspect]
     Active Substance: APREPITANT
     Route: 048
     Dates: start: 20240524, end: 20240524
  8. APREPITANT [Suspect]
     Active Substance: APREPITANT
     Route: 048
     Dates: start: 20240525, end: 20240526
  9. DEXAMETHASONE [Suspect]
     Active Substance: DEXAMETHASONE
     Indication: Hodgkin^s disease
     Route: 048
     Dates: start: 20240503, end: 20240507
  10. DEXAMETHASONE [Suspect]
     Active Substance: DEXAMETHASONE
     Route: 048
     Dates: start: 20240524, end: 20240528
  11. ADCETRIS [Suspect]
     Active Substance: BRENTUXIMAB VEDOTIN
     Indication: Hodgkin^s disease
     Route: 042
     Dates: start: 20240524, end: 20240524
  12. ADCETRIS [Suspect]
     Active Substance: BRENTUXIMAB VEDOTIN
     Route: 042
     Dates: start: 20240503, end: 20240503
  13. POLARAMINE [Suspect]
     Active Substance: DEXCHLORPHENIRAMINE MALEATE
     Indication: Premedication
     Route: 042
     Dates: start: 20240503, end: 20240503
  14. POLARAMINE [Suspect]
     Active Substance: DEXCHLORPHENIRAMINE MALEATE
     Route: 042
     Dates: start: 20240524, end: 20240524
  15. ONDANSETRON [Suspect]
     Active Substance: ONDANSETRON
     Indication: Prophylaxis of nausea and vomiting
     Route: 042
     Dates: start: 20240524, end: 20240527
  16. ONDANSETRON [Suspect]
     Active Substance: ONDANSETRON
     Route: 042
     Dates: start: 20240503, end: 20240505
  17. DACARBAZINE [Suspect]
     Active Substance: DACARBAZINE
     Indication: Hodgkin^s disease
     Route: 042
     Dates: start: 20240504, end: 20240505
  18. DACARBAZINE [Suspect]
     Active Substance: DACARBAZINE
     Route: 042
     Dates: start: 20240525, end: 20240526
  19. DOXORUBICIN [Suspect]
     Active Substance: DOXORUBICIN
     Indication: Hodgkin^s disease
     Route: 042
     Dates: start: 20240524, end: 20240524
  20. DOXORUBICIN [Suspect]
     Active Substance: DOXORUBICIN
     Route: 042
     Dates: start: 20240503, end: 20240503
  21. ETOPOSIDE [Suspect]
     Active Substance: ETOPOSIDE
     Indication: Hodgkin^s disease
     Route: 042
     Dates: start: 20240503, end: 20240505
  22. ETOPOSIDE [Suspect]
     Active Substance: ETOPOSIDE
     Route: 042
     Dates: start: 20240524, end: 20240526

REACTIONS (2)
  - Meningitis aseptic [Recovering/Resolving]
  - Acute polyneuropathy [Recovering/Resolving]

NARRATIVE: CASE EVENT DATE: 20240618
